FAERS Safety Report 16471426 (Version 1)
Quarter: 2019Q2

REPORT INFORMATION
  Report Type: Report from Study
  Country: US (occurrence: US)
  Receive Date: 20190624
  Receipt Date: 20190624
  Transmission Date: 20190711
  Serious: Yes (Hospitalization)
  Sender: FDA-Public Use
  Company Number: US-BEH-2019103262

PATIENT
  Age: 85 Year
  Sex: Female

DRUGS (1)
  1. ZEMAIRA [Suspect]
     Active Substance: .ALPHA.1-PROTEINASE INHIBITOR HUMAN
     Indication: ALPHA-1 ANTI-TRYPSIN DEFICIENCY
     Dosage: 60 MILLIGRAM/KILOGRAM, QW
     Route: 042

REACTIONS (5)
  - Fatigue [Not Recovered/Not Resolved]
  - Faeces discoloured [Unknown]
  - Hypotension [Unknown]
  - Gastrointestinal disorder [Unknown]
  - Haematochezia [Unknown]

NARRATIVE: CASE EVENT DATE: 20190604
